FAERS Safety Report 25154363 (Version 2)
Quarter: 2025Q4

REPORT INFORMATION
  Report Type: Spontaneous
  Country: US (occurrence: US)
  Receive Date: 20250403
  Receipt Date: 20251217
  Transmission Date: 20260117
  Serious: No
  Sender: ROCHE
  Company Number: US-ROCHE-10000243638

PATIENT
  Sex: Female

DRUGS (6)
  1. AVASTIN [Suspect]
     Active Substance: BEVACIZUMAB
     Indication: Meningioma benign
  2. AVASTIN [Suspect]
     Active Substance: BEVACIZUMAB
     Indication: Oedema
  3. AVASTIN [Suspect]
     Active Substance: BEVACIZUMAB
     Indication: Pain
  4. TRAMADOL [Concomitant]
     Active Substance: TRAMADOL
  5. CELEBREX [Concomitant]
     Active Substance: CELECOXIB
  6. Medrol pack [Concomitant]

REACTIONS (9)
  - Platelet count increased [Not Recovered/Not Resolved]
  - Off label use [Unknown]
  - Swelling [Unknown]
  - Pain in extremity [Unknown]
  - Back pain [Unknown]
  - Chest pain [Not Recovered/Not Resolved]
  - Arthralgia [Unknown]
  - Platelet count decreased [Unknown]
  - Pain [Unknown]

NARRATIVE: CASE EVENT DATE: 20251126
